FAERS Safety Report 5898637-6 (Version None)
Quarter: 2008Q3

REPORT INFORMATION
  Report Type: 
  Country: None (occurrence: None)
  Receive Date: 20080925
  Receipt Date: 20080320
  Transmission Date: 20090109
  Serious: No
  Sender: FDA-Public Use
  Company Number: A0714305A

PATIENT
  Age: 26 Year
  Sex: Female
  Weight: 63.6 kg

DRUGS (3)
  1. WELLBUTRIN XL [Suspect]
     Indication: DEPRESSION
     Dosage: 150MG PER DAY
     Route: 048
     Dates: start: 20080108
  2. LITHIUM CARBONATE [Concomitant]
     Indication: BIPOLAR DISORDER
     Dosage: 450MG AT NIGHT
     Route: 048
  3. INVEGA [Concomitant]
     Dosage: 3MG AT NIGHT
     Route: 048

REACTIONS (1)
  - AMPHETAMINES POSITIVE [None]
